FAERS Safety Report 9358646 (Version 3)
Quarter: 2013Q3

REPORT INFORMATION
  Report Type: Spontaneous
  Country: US (occurrence: US)
  Receive Date: 20130620
  Receipt Date: 20130905
  Transmission Date: 20140515
  Serious: Yes (Hospitalization, Other)
  Sender: FDA-Public Use
  Company Number: US-CELGENEUS-163-21880-13062166

PATIENT
  Age: 66 Year
  Sex: Male
  Weight: 115.32 kg

DRUGS (10)
  1. REVLIMID [Suspect]
     Indication: PLASMA CELL MYELOMA
     Dosage: 25 MILLIGRAM
     Route: 048
     Dates: start: 20130423
  2. REVLIMID [Suspect]
     Dosage: 25 MILLIGRAM
     Route: 048
     Dates: start: 20130521
  3. ASPIRIN [Concomitant]
     Indication: PRODUCT USED FOR UNKNOWN INDICATION
     Route: 065
  4. MAJOR CALCIUM ANTACID [Concomitant]
     Indication: PRODUCT USED FOR UNKNOWN INDICATION
     Route: 065
  5. NATURAL BLEND VITAMIN D3 [Concomitant]
     Indication: VITAMIN SUPPLEMENTATION
     Route: 065
  6. GLIPIZIDE [Concomitant]
     Indication: DIABETES MELLITUS
     Route: 065
  7. NIFEDIPINE [Concomitant]
     Indication: HYPERTENSION
     Route: 065
  8. FEXOFENADINE HCL [Concomitant]
     Indication: SINUS DISORDER
     Route: 065
  9. MOTRIN [Concomitant]
     Indication: SWELLING
     Route: 065
  10. TYLENOL [Concomitant]
     Indication: GOUT
     Route: 065

REACTIONS (16)
  - Retinal detachment [Not Recovered/Not Resolved]
  - Haematochezia [Not Recovered/Not Resolved]
  - Constipation [Recovered/Resolved]
  - Heart rate increased [Not Recovered/Not Resolved]
  - Dizziness [Not Recovered/Not Resolved]
  - Fatigue [Not Recovered/Not Resolved]
  - Dyspnoea [Recovered/Resolved]
  - Mental impairment [Not Recovered/Not Resolved]
  - Malaise [Not Recovered/Not Resolved]
  - Flatulence [Not Recovered/Not Resolved]
  - Urine analysis abnormal [Not Recovered/Not Resolved]
  - Confusional state [Not Recovered/Not Resolved]
  - Hyperhidrosis [Not Recovered/Not Resolved]
  - Decreased appetite [Not Recovered/Not Resolved]
  - Weight decreased [Not Recovered/Not Resolved]
  - Rash [Not Recovered/Not Resolved]
